FAERS Safety Report 8791450 (Version 2)
Quarter: 2012Q4

REPORT INFORMATION
  Report Type: Spontaneous
  Country: US (occurrence: None)
  Receive Date: 20120912
  Receipt Date: 20120928
  Transmission Date: 20130627
  Serious: Yes (Hospitalization)
  Sender: FDA-Public Use
  Company Number: 2012-0776

PATIENT
  Sex: Male

DRUGS (1)
  1. KYPROLIS (CARFILZOMIB) (15 MILLIGRAM(S)/SQ.METER, INJECTION FOR INFUSION) (CARFILZOMIB) [Suspect]
     Indication: DRUG USE FOR UNKNOWN INDICATION
     Route: 042
     Dates: start: 20120814

REACTIONS (3)
  - Atrial tachycardia [None]
  - Dyspnoea [None]
  - Haemoglobin decreased [None]
